FAERS Safety Report 9607856 (Version 1)
Quarter: 2013Q4

REPORT INFORMATION
  Report Type: Spontaneous
  Country: US (occurrence: None)
  Receive Date: 20131007
  Receipt Date: 20131007
  Transmission Date: 20140711
  Serious: No
  Sender: FDA-Public Use
  Company Number: None

PATIENT
  Sex: Female

DRUGS (1)
  1. ENBREL [Suspect]
     Indication: PRODUCT USED FOR UNKNOWN INDICATION
     Dosage: 50MG. ONCE WEEKLY, SUB Q
     Route: 058
     Dates: start: 20121023

REACTIONS (5)
  - Inflammation [None]
  - Dysarthria [None]
  - Bradyphrenia [None]
  - Malaise [None]
  - Condition aggravated [None]
